FAERS Safety Report 9311798 (Version 2)
Quarter: 2013Q3

REPORT INFORMATION
  Report Type: Report from Study
  Country: US (occurrence: US)
  Receive Date: 20130528
  Receipt Date: 20130925
  Transmission Date: 20140515
  Serious: Yes (Other)
  Sender: FDA-Public Use
  Company Number: PHEH2013US011448

PATIENT
  Age: 50 Year
  Sex: Female
  Weight: 106 kg

DRUGS (8)
  1. GLEEVEC [Suspect]
     Indication: CHRONIC MYELOID LEUKAEMIA
     Dosage: 400 MG, DAILY
     Route: 048
     Dates: start: 20130211, end: 20130322
  2. GLEEVEC [Suspect]
     Dosage: 400 MG, DAILY
     Route: 048
     Dates: start: 20130513
  3. ADVAIR [Concomitant]
     Dosage: 250 UG, BID
     Dates: start: 20120211
  4. ALLOPURINOL [Concomitant]
     Indication: RENAL DISORDER
     Dosage: 200 MG, QD
     Route: 048
     Dates: start: 20120815
  5. AMBIEN [Concomitant]
     Indication: SLEEP DISORDER
     Dosage: 10 MG, UNK
     Route: 048
  6. MICARDIS [Concomitant]
     Indication: HYPERTENSION
     Dosage: 80 MG, UNK
     Route: 048
  7. SPIRONOLACTONE [Concomitant]
     Indication: HYPERTENSION
     Dosage: 25 MG, DAILY
     Route: 048
  8. DIURETICS [Concomitant]

REACTIONS (7)
  - Renal tubular necrosis [Unknown]
  - Diverticulitis [Unknown]
  - Blood creatinine increased [Not Recovered/Not Resolved]
  - Diarrhoea [Recovering/Resolving]
  - Hypovolaemia [Unknown]
  - Hypotension [Unknown]
  - Dehydration [Unknown]
